FAERS Safety Report 23821463 (Version 1)
Quarter: 2024Q2

REPORT INFORMATION
  Report Type: Spontaneous
  Country: GB (occurrence: GB)
  Receive Date: 20240506
  Receipt Date: 20240506
  Transmission Date: 20240716
  Serious: Yes (Hospitalization)
  Sender: FDA-Public Use
  Company Number: GB-HIKMA PHARMACEUTICALS-GB-H14001-24-03409

PATIENT
  Age: 68 Year
  Sex: Female
  Weight: 51.3 kg

DRUGS (3)
  1. CARBOPLATIN [Suspect]
     Active Substance: CARBOPLATIN
     Indication: Anal cancer
     Dosage: 300 MILLIGRAM; DURATION: 118 DAYS
     Route: 065
     Dates: start: 20220915, end: 20230110
  2. PACLITAXEL [Suspect]
     Active Substance: PACLITAXEL
     Indication: Anal cancer
     Dosage: 108 MILLIGRAM;
     Route: 065
     Dates: start: 20240120
  3. PACLITAXEL [Suspect]
     Active Substance: PACLITAXEL
     Indication: Anal cancer
     Dosage: 108 MILLIGRAM/SQ. METER; DURATION:118 DAYS
     Route: 065
     Dates: start: 20220915, end: 20230110

REACTIONS (2)
  - Nausea [Recovered/Resolved]
  - Vomiting [Recovered/Resolved]

NARRATIVE: CASE EVENT DATE: 20230110
